FAERS Safety Report 25075268 (Version 1)
Quarter: 2025Q1

REPORT INFORMATION
  Report Type: Report from Study
  Country: US (occurrence: US)
  Receive Date: 20250313
  Receipt Date: 20250313
  Transmission Date: 20250409
  Serious: Yes (Other)
  Sender: ABBVIE
  Company Number: US-ABBVIE-6143360

PATIENT
  Age: 57 Year
  Sex: Male
  Weight: 90.72 kg

DRUGS (2)
  1. HUMIRA [Suspect]
     Active Substance: ADALIMUMAB
     Indication: Psoriatic arthropathy
     Dosage: FORM STRENGTH: 40 MG
     Route: 058
     Dates: start: 20240515, end: 202411
  2. HUMIRA [Suspect]
     Active Substance: ADALIMUMAB
     Dosage: FORM STRENGTH: 40 MG
     Route: 058
     Dates: start: 2024

REACTIONS (3)
  - Sinusitis [Recovered/Resolved]
  - Muscle rupture [Recovering/Resolving]
  - Injection site irritation [Recovered/Resolved]

NARRATIVE: CASE EVENT DATE: 20240101
